FAERS Safety Report 9025296 (Version 1)
Quarter: 2013Q1

REPORT INFORMATION
  Report Type: Spontaneous
  Country: CA (occurrence: CA)
  Receive Date: 20130122
  Receipt Date: 20130122
  Transmission Date: 20140127
  Serious: Yes (Death)
  Sender: FDA-Public Use
  Company Number: CA-B.I. PHARMACEUTICALS,INC./RIDGEFIELD-2013-CN-00090CN

PATIENT
  Age: 86 Year
  Sex: Male
  Weight: 59 kg

DRUGS (11)
  1. PRADAX [Suspect]
     Dosage: 220 MG
     Route: 065
  2. ALENDRONATE [Concomitant]
  3. AMLODIPINE [Concomitant]
  4. BUPROPION [Concomitant]
  5. CALCITRIOL [Concomitant]
  6. DIGOXIN [Concomitant]
  7. FENTANYL [Concomitant]
  8. PANTOPRAZOLE [Concomitant]
  9. PERINDOPRIL [Concomitant]
  10. PREDNISONE [Concomitant]
  11. SIMVASTATIN [Concomitant]

REACTIONS (4)
  - Subdural haematoma [Fatal]
  - Activated partial thromboplastin time prolonged [Fatal]
  - Brain herniation [Fatal]
  - International normalised ratio increased [Fatal]
